FAERS Safety Report 21206116 (Version 1)
Quarter: 2022Q3

REPORT INFORMATION
  Report Type: Report from Study
  Country: GB (occurrence: GB)
  Receive Date: 20220812
  Receipt Date: 20220812
  Transmission Date: 20221027
  Serious: Yes (Disabling)
  Sender: FDA-Public Use
  Company Number: GB-PFIZER INC-2021226793

PATIENT
  Age: 3 Year
  Sex: Female
  Weight: 29.9 kg

DRUGS (4)
  1. LORLATINIB [Suspect]
     Active Substance: LORLATINIB
     Indication: Histiocytosis
     Dosage: UNK UNK, 1X/DAY
     Route: 048
     Dates: start: 20201201
  2. LORLATINIB [Suspect]
     Active Substance: LORLATINIB
     Indication: Nervous system disorder
     Dosage: UNK, 1X/DAY
     Route: 048
     Dates: start: 20201201
  3. LORLATINIB [Suspect]
     Active Substance: LORLATINIB
     Dosage: REDUCED DOSE
     Route: 048
  4. CHOLECALCIFEROL [Concomitant]
     Active Substance: CHOLECALCIFEROL
     Dosage: UNK

REACTIONS (5)
  - Knee deformity [Not Recovered/Not Resolved]
  - Gait disturbance [Not Recovered/Not Resolved]
  - Blood cholesterol increased [Not Recovered/Not Resolved]
  - Blood triglycerides increased [Not Recovered/Not Resolved]
  - Weight increased [Unknown]

NARRATIVE: CASE EVENT DATE: 20210201
